FAERS Safety Report 6974336-4 (Version None)
Quarter: 2010Q3

REPORT INFORMATION
  Report Type: 
  Country: None (occurrence: None)
  Receive Date: 20100909
  Receipt Date: 20100830
  Transmission Date: 20110219
  Serious: Yes (Other)
  Sender: FDA-Public Use
  Company Number: PHHY2010IE53002

PATIENT
  Sex: Female

DRUGS (7)
  1. ZOLEDRONIC [Suspect]
     Indication: RHEUMATOID ARTHRITIS
     Dosage: 5 MG
     Dates: start: 20091028, end: 20091107
  2. ZOLEDRONIC [Suspect]
     Indication: ARTHRITIS
     Dosage: 5 ,G
     Route: 042
     Dates: start: 20091001
  3. CALCIUM [Concomitant]
     Dosage: UNK
  4. DONA [Concomitant]
     Dosage: UNK
  5. PRILOSEC [Concomitant]
     Dosage: 20 MG, UNK
  6. DAKTARIN [Concomitant]
     Dosage: UNK
  7. ANTIBIOTICS [Concomitant]
     Dosage: UNK

REACTIONS (4)
  - MELANOCYTIC NAEVUS [None]
  - PAIN [None]
  - SKIN DISCOLOURATION [None]
  - TOOTH LOSS [None]
